FAERS Safety Report 9261412 (Version 1)
Quarter: 2013Q2

REPORT INFORMATION
  Report Type: Spontaneous
  Country: FR (occurrence: FR)
  Receive Date: 20130429
  Receipt Date: 20130429
  Transmission Date: 20140414
  Serious: Yes (Other)
  Sender: FDA-Public Use
  Company Number: FR-BRISTOL-MYERS SQUIBB COMPANY-18585216

PATIENT
  Age: 78 Year
  Sex: Male
  Weight: 88 kg

DRUGS (6)
  1. BYETTA PEN DISPOSABLE [Suspect]
     Indication: TYPE 2 DIABETES MELLITUS
     Dosage: 7SEP2009-MAY2010,5MICROGRAM?MAR2012-3DEC2012,10MICROGRAM
     Route: 058
     Dates: start: 20090907
  2. AMAREL [Concomitant]
     Route: 048
  3. STAGID [Concomitant]
     Route: 048
  4. UVEDOSE [Concomitant]
  5. COUMADINE [Concomitant]
  6. SPECIAFOLDINE [Concomitant]

REACTIONS (1)
  - Refractory cytopenia with unilineage dysplasia [Not Recovered/Not Resolved]
